FAERS Safety Report 5386829-4 (Version None)
Quarter: 2007Q3

REPORT INFORMATION
  Report Type: 
  Country: None (occurrence: None)
  Receive Date: 20070713
  Receipt Date: 20070706
  Transmission Date: 20080115
  Serious: Yes (Death)
  Sender: FDA-Public Use
  Company Number: IL-ROXANE LABORATORIES, INC-2007-BP-16851RO

PATIENT
  Age: 20 Year
  Sex: Male

DRUGS (5)
  1. CYCLOPHOSPHAMIDE [Suspect]
     Indication: CHEMOTHERAPY
     Dosage: 1500 MG/M2/D X 2 COURSES
  2. VINCRISTINE [Suspect]
     Indication: CHEMOTHERAPY
     Dosage: 1.5 MG/M2/D X 3 COURSES
  3. ETOPOSIDE [Suspect]
     Indication: CHEMOTHERAPY
     Dosage: 75 MG/M2/D X 3 COURSES
  4. CISPLATIN [Suspect]
     Indication: CHEMOTHERAPY
     Dosage: 90 MG/M2
  5. CARBOPLATIN [Suspect]
     Indication: CHEMOTHERAPY
     Dosage: 400 MG/M2 X 2 COURSES

REACTIONS (5)
  - ASTHENIA [None]
  - CONVULSION [None]
  - DISORIENTATION [None]
  - GLIOBLASTOMA MULTIFORME [None]
  - MEMORY IMPAIRMENT [None]
